FAERS Safety Report 6644079-5 (Version None)
Quarter: 2010Q1

REPORT INFORMATION
  Report Type: 
  Country: None (occurrence: None)
  Receive Date: 20100304
  Receipt Date: 20091118
  Transmission Date: 20100710
  Serious: Yes (Hospitalization)
  Sender: FDA-Public Use
  Company Number: 20091118CINRY1264

PATIENT
  Age: 32 Year
  Sex: Female

DRUGS (2)
  1. CINRYZE [Suspect]
     Indication: HEREDITARY ANGIOEDEMA
     Dosage: (1000 UNIT, TUESDAY AND FRIDAY), INTRAVENOUS
     Route: 042
     Dates: start: 20090101
  2. CINRYZE [Suspect]
     Indication: PROPHYLAXIS
     Dosage: (1000 UNIT, TUESDAY AND FRIDAY), INTRAVENOUS
     Route: 042
     Dates: start: 20090101

REACTIONS (3)
  - HEREDITARY ANGIOEDEMA [None]
  - PAIN [None]
  - SWELLING [None]
